FAERS Safety Report 8160181-3 (Version None)
Quarter: 2012Q1

REPORT INFORMATION
  Report Type: 
  Country: None (occurrence: None)
  Receive Date: 20120223
  Receipt Date: 20120217
  Transmission Date: 20120608
  Serious: No
  Sender: FDA-Public Use
  Company Number: US-TEVA-323524USA

PATIENT
  Sex: Female
  Weight: 45.854 kg

DRUGS (1)
  1. PROAIR HFA [Suspect]
     Dates: start: 20120216, end: 20120216

REACTIONS (1)
  - DYSPNOEA [None]
